FAERS Safety Report 25394105 (Version 1)
Quarter: 2025Q2

REPORT INFORMATION
  Report Type: Spontaneous
  Country: US (occurrence: None)
  Receive Date: 20250604
  Receipt Date: 20250604
  Transmission Date: 20250717
  Serious: No
  Sender: ENCUBE ETHICALS
  Company Number: US-Encube-001871

PATIENT

DRUGS (1)
  1. CICLOPIROX [Suspect]
     Active Substance: CICLOPIROX
     Indication: Onychomycosis
     Dates: start: 20250319

REACTIONS (3)
  - Onycholysis [Unknown]
  - Deformity [Unknown]
  - Nail discolouration [Unknown]

NARRATIVE: CASE EVENT DATE: 20250101
